FAERS Safety Report 14120589 (Version 1)
Quarter: 2017Q4

REPORT INFORMATION
  Report Type: Spontaneous
  Country: GB (occurrence: GB)
  Receive Date: 20171024
  Receipt Date: 20171024
  Transmission Date: 20180321
  Serious: Yes (Hospitalization)
  Sender: FDA-Public Use
  Company Number: GB-TEVA-816303ACC

PATIENT
  Age: 45 Year
  Sex: Female
  Weight: 61.68 kg

DRUGS (1)
  1. DOXYCYCLINE HYCLATE. [Suspect]
     Active Substance: DOXYCYCLINE HYCLATE
     Indication: SINUSITIS
     Dosage: TWO 100MG CAPSULES ON FIRST DAY, ONE 100MG CAPSULE FOR 2 WEEKS.
     Route: 048
     Dates: start: 20170913

REACTIONS (1)
  - Generalised tonic-clonic seizure [Recovered/Resolved]

NARRATIVE: CASE EVENT DATE: 20170914
